FAERS Safety Report 18661582 (Version 1)
Quarter: 2020Q4

REPORT INFORMATION
  Report Type: Spontaneous
  Country: MY (occurrence: MY)
  Receive Date: 20201224
  Receipt Date: 20201224
  Transmission Date: 20210114
  Serious: Yes (Other)
  Sender: FDA-Public Use
  Company Number: MY-TEVA-2020-MY-1863652

PATIENT
  Age: 62 Year
  Sex: Female

DRUGS (1)
  1. RIBOMUSTIN [Suspect]
     Active Substance: BENDAMUSTINE HYDROCHLORIDE
     Indication: DIFFUSE LARGE B-CELL LYMPHOMA
     Dosage: (100 MG/VIAL), CYCLIC
     Route: 042

REACTIONS (2)
  - Product use in unapproved indication [Unknown]
  - Pityriasis lichenoides et varioliformis acuta [Not Recovered/Not Resolved]
